FAERS Safety Report 24560011 (Version 1)
Quarter: 2024Q4

REPORT INFORMATION
  Report Type: Spontaneous
  Country: EG (occurrence: EG)
  Receive Date: 20241029
  Receipt Date: 20241029
  Transmission Date: 20250115
  Serious: Yes (Hospitalization)
  Sender: HIKMA
  Company Number: EG-HIKMA PHARMACEUTICALS USA INC.-EG-H14001-24-09961

PATIENT
  Age: 63 Year
  Sex: Female
  Weight: 103 kg

DRUGS (4)
  1. CARBOPLATIN [Suspect]
     Active Substance: CARBOPLATIN
     Indication: Breast cancer
     Dosage: 231 MILLIGRAM, WEEKLY
     Route: 041
     Dates: start: 20240731
  2. CARBOPLATIN [Suspect]
     Active Substance: CARBOPLATIN
     Dosage: 231 MILLIGRAM, WEEKLY (CYCLE 3, WEEK 8)
     Route: 041
     Dates: start: 20241006
  3. PACLITAXEL [Suspect]
     Active Substance: PACLITAXEL
     Indication: Breast cancer
     Dosage: 231 MILLIGRAM, WEEKLY
     Route: 041
     Dates: start: 20240731
  4. PACLITAXEL [Suspect]
     Active Substance: PACLITAXEL
     Dosage: 231 MILLIGRAM, WEEKLY, (CYCLE 3, WEEK 8)
     Route: 041
     Dates: start: 20241006

REACTIONS (3)
  - Hypertension [Recovered/Resolved]
  - Tachycardia [Recovered/Resolved]
  - Heart rate increased [Recovered/Resolved]

NARRATIVE: CASE EVENT DATE: 20241006
